FAERS Safety Report 24172641 (Version 1)
Quarter: 2024Q3

REPORT INFORMATION
  Report Type: Spontaneous
  Country: SI (occurrence: None)
  Receive Date: 20240804
  Receipt Date: 20240804
  Transmission Date: 20241017
  Serious: Yes (Disabling)
  Sender: Public
  Company Number: None

PATIENT
  Age: 38 Year
  Sex: Female
  Weight: 71 kg

DRUGS (2)
  1. RINVOQ [Suspect]
     Active Substance: UPADACITINIB
     Indication: Steroid withdrawal syndrome
     Dates: start: 20221201, end: 20240325
  2. Ferrum [Concomitant]

REACTIONS (14)
  - Myalgia [None]
  - Bone pain [None]
  - Fatigue [None]
  - Anaemia [None]
  - Blood cholesterol increased [None]
  - Vulvovaginal candidiasis [None]
  - Oral herpes [None]
  - Upper respiratory tract infection [None]
  - Ocular hyperaemia [None]
  - Eye swelling [None]
  - Rash [None]
  - Pruritus [None]
  - Chills [None]
  - Pruritus genital [None]

NARRATIVE: CASE EVENT DATE: 20240325
